FAERS Safety Report 6695368-X (Version None)
Quarter: 2010Q2

REPORT INFORMATION
  Report Type: 
  Country: None (occurrence: None)
  Receive Date: 20100423
  Receipt Date: 20100423
  Transmission Date: 20101027
  Serious: No
  Sender: FDA-Public Use
  Company Number: None

PATIENT
  Age: 68 Year
  Sex: Male
  Weight: 67.586 kg

DRUGS (2)
  1. VITAMIN D [Suspect]
     Indication: VITAMIN D DEFICIENCY
     Dosage: 50,000 IU 1/A DAY 7 DAYS THEN 1 A WK MOUTH
     Route: 048
     Dates: start: 20100410
  2. VITAMIN D [Suspect]
     Indication: VITAMIN D DEFICIENCY
     Dosage: 50,000 IU 1/A DAY 7 DAYS THEN 1 A WK MOUTH
     Route: 048
     Dates: start: 20100411

REACTIONS (2)
  - ABDOMINAL DISCOMFORT [None]
  - DIARRHOEA [None]
